FAERS Safety Report 14272306 (Version 3)
Quarter: 2019Q1

REPORT INFORMATION
  Report Type: Spontaneous
  Country: US (occurrence: US)
  Receive Date: 20171211
  Receipt Date: 20190211
  Transmission Date: 20190417
  Serious: Yes (Hospitalization, Other)
  Sender: FDA-Public Use
  Company Number: US-OTSUKA-2017_018769

PATIENT
  Sex: Female

DRUGS (4)
  1. ABILIFY [Suspect]
     Active Substance: ARIPIPRAZOLE
     Indication: DEPRESSION
  2. ABILIFY [Suspect]
     Active Substance: ARIPIPRAZOLE
     Indication: BIPOLAR DISORDER
     Dosage: UNK
     Route: 065
  3. ABILIFY [Suspect]
     Active Substance: ARIPIPRAZOLE
     Indication: DEPRESSION
     Dosage: 15 MG, QD
     Route: 065
     Dates: end: 2014
  4. ABILIFY [Suspect]
     Active Substance: ARIPIPRAZOLE
     Indication: ANXIETY

REACTIONS (10)
  - Brain injury [Unknown]
  - Injury [Unknown]
  - Compulsive hoarding [Unknown]
  - Obsessive-compulsive disorder [Unknown]
  - Economic problem [Unknown]
  - Mental disorder [Unknown]
  - Gambling disorder [Unknown]
  - Product use in unapproved indication [Unknown]
  - Homeless [Unknown]
  - Compulsive shopping [Unknown]

NARRATIVE: CASE EVENT DATE: 2010
